FAERS Safety Report 5522713-0 (Version None)
Quarter: 2007Q4

REPORT INFORMATION
  Report Type: 
  Country: None (occurrence: None)
  Receive Date: 20071120
  Receipt Date: 20071109
  Transmission Date: 20080405
  Serious: Yes (Life-Threatening, Hospitalization, Other)
  Sender: FDA-Public Use
  Company Number: AU-PFIZER INC-2007055940

PATIENT
  Sex: Male

DRUGS (19)
  1. MARAVIROC [Suspect]
     Indication: HIV TEST POSITIVE
     Route: 048
     Dates: start: 20050427, end: 20070709
  2. MK-0518 [Concomitant]
     Route: 048
  3. TMC-114 [Concomitant]
     Route: 048
     Dates: start: 20070503
  4. LAMIVUDINE [Concomitant]
     Route: 048
     Dates: start: 20061026
  5. RITONAVIR [Concomitant]
     Route: 048
     Dates: start: 20070503
  6. CARVEDILOL [Concomitant]
     Route: 048
     Dates: start: 20020801
  7. CORTISONE ACETATE [Concomitant]
     Route: 048
     Dates: start: 19930101
  8. BACTRIM DS [Concomitant]
     Route: 048
     Dates: start: 20020719
  9. FLUDROCORTISONE ACETATE [Concomitant]
     Route: 048
     Dates: start: 19930101
  10. HYDROZOLE [Concomitant]
     Route: 061
     Dates: start: 20050405
  11. WARFARIN SODIUM [Concomitant]
     Route: 048
     Dates: start: 20041109
  12. PRAVASTATIN [Concomitant]
     Route: 048
     Dates: start: 20040725
  13. ESCITALOPRAM OXALATE [Concomitant]
     Route: 048
     Dates: start: 20060501
  14. ENDONE [Concomitant]
     Route: 048
     Dates: start: 20050825
  15. ORDINE [Concomitant]
     Route: 048
     Dates: start: 20050504
  16. CALCITRIOL [Concomitant]
     Route: 048
     Dates: start: 20051124
  17. FOSAMAX [Concomitant]
     Route: 048
     Dates: start: 20061101
  18. AMOXIL [Concomitant]
     Route: 048
     Dates: start: 20061005, end: 20070706
  19. TEICOPLANIN [Concomitant]
     Route: 042
     Dates: start: 20070706, end: 20070709

REACTIONS (2)
  - PNEUMONIA [None]
  - RESPIRATORY ARREST [None]
